FAERS Safety Report 7270981-X (Version None)
Quarter: 2011Q1

REPORT INFORMATION
  Report Type: 
  Country: None (occurrence: None)
  Receive Date: 20110202
  Receipt Date: 20110119
  Transmission Date: 20110831
  Serious: Yes (Life-Threatening, Hospitalization)
  Sender: FDA-Public Use
  Company Number: DE-GENENTECH-312985

PATIENT
  Sex: Female
  Weight: 68.7 kg

DRUGS (8)
  1. RITUXIMAB [Suspect]
     Indication: B-CELL LYMPHOMA
     Dosage: 375 MG/M2, UNK
     Route: 065
     Dates: start: 20080225
  2. MITOXANTRONE [Suspect]
     Indication: B-CELL LYMPHOMA
     Dosage: 4 MG/M2, UNK
     Route: 042
     Dates: start: 20080226
  3. COTRIM [Concomitant]
     Indication: PRODUCT USED FOR UNKNOWN INDICATION
     Dosage: UNK
  4. LEVOTHYROXINE SODIUM [Concomitant]
     Indication: PRODUCT USED FOR UNKNOWN INDICATION
     Dosage: UNK
  5. FLUDARA [Suspect]
     Indication: B-CELL LYMPHOMA
     Dosage: 15 MG/M2, UNK
     Route: 042
     Dates: start: 20080226
  6. ATENOLOL [Concomitant]
     Indication: PRODUCT USED FOR UNKNOWN INDICATION
     Dosage: UNK
  7. CYCLOPHOSPHAMIDE [Suspect]
     Indication: B-CELL LYMPHOMA
     Dosage: 200 MG/M2, UNK
     Route: 042
     Dates: start: 20080226
  8. ESOMEPRAZOLE [Concomitant]
     Dosage: UNK

REACTIONS (1)
  - MYELOID LEUKAEMIA [None]
